FAERS Safety Report 17493739 (Version 4)
Quarter: 2020Q4

REPORT INFORMATION
  Report Type: Report from Study
  Country: None (occurrence: US)
  Receive Date: 20200304
  Receipt Date: 20201023
  Transmission Date: 20210113
  Serious: Yes (Hospitalization, Other)
  Sender: FDA-Public Use
  Company Number: US-ABBVIE-19P-163-3172152-00

PATIENT
  Age: 71 Year
  Sex: Male

DRUGS (4)
  1. IMBRUVICA [Suspect]
     Active Substance: IBRUTINIB
     Route: 048
     Dates: start: 20191115
  2. IMBRUVICA [Suspect]
     Active Substance: IBRUTINIB
     Indication: MANTLE CELL LYMPHOMA
     Route: 048
     Dates: start: 20191116
  3. IMBRUVICA [Suspect]
     Active Substance: IBRUTINIB
     Route: 048
     Dates: start: 20191116
  4. IMBRUVICA [Suspect]
     Active Substance: IBRUTINIB
     Indication: MANTLE CELL LYMPHOMA
     Route: 048
     Dates: start: 20191115

REACTIONS (11)
  - Balance disorder [Unknown]
  - Head injury [Unknown]
  - Skin abrasion [Unknown]
  - Pain [Unknown]
  - Skin laceration [Unknown]
  - Fall [Unknown]
  - Bone disorder [Unknown]
  - Malignant neoplasm progression [Unknown]
  - Skin irritation [Unknown]
  - Bone contusion [Unknown]
  - Influenza [Unknown]

NARRATIVE: CASE EVENT DATE: 201912
